FAERS Safety Report 25273047 (Version 1)
Quarter: 2025Q2

REPORT INFORMATION
  Report Type: Spontaneous
  Country: US (occurrence: US)
  Receive Date: 20250506
  Receipt Date: 20250506
  Transmission Date: 20250717
  Serious: No
  Sender: NOBELPHARMA AMERICA, LLC
  Company Number: US-Nobelpharma America, LLC-NPA-2025-00708

PATIENT
  Age: 40 Year
  Sex: Male

DRUGS (1)
  1. HYFTOR [Suspect]
     Active Substance: SIROLIMUS
     Indication: Tuberous sclerosis complex
     Dates: start: 20250212

REACTIONS (1)
  - Acne [Not Recovered/Not Resolved]

NARRATIVE: CASE EVENT DATE: 20250201
